FAERS Safety Report 19132332 (Version 1)
Quarter: 2021Q2

REPORT INFORMATION
  Report Type: Spontaneous
  Country: MY (occurrence: MY)
  Receive Date: 20210413
  Receipt Date: 20210413
  Transmission Date: 20210717
  Serious: Yes (Death, Other)
  Sender: FDA-Public Use
  Company Number: MY-SLATE RUN PHARMACEUTICALS-21MY000446

PATIENT

DRUGS (1)
  1. CINACALCET HYDROCHLORIDE. [Suspect]
     Active Substance: CINACALCET HYDROCHLORIDE
     Indication: HYPERCALCAEMIA
     Route: 065

REACTIONS (5)
  - Death [Fatal]
  - Nephrocalcinosis [Unknown]
  - Eastern Cooperative Oncology Group performance status worsened [Unknown]
  - Arrhythmia [Unknown]
  - Hypercalcaemia [Unknown]
